FAERS Safety Report 5844708-X (Version None)
Quarter: 2008Q3

REPORT INFORMATION
  Report Type: 
  Country: None (occurrence: None)
  Receive Date: 20080814
  Receipt Date: 20080807
  Transmission Date: 20090109
  Serious: No
  Sender: FDA-Public Use
  Company Number: US-BAYER-200830403NA

PATIENT
  Age: 36 Year
  Sex: Female
  Weight: 106 kg

DRUGS (1)
  1. MAGNEVIST PHARMACY BULK PACK [Suspect]
     Indication: NUCLEAR MAGNETIC RESONANCE IMAGING BRAIN
     Dosage: TOTAL DAILY DOSE: 21 ML  UNIT DOSE: 50 ML
     Route: 042
     Dates: start: 20080807, end: 20080807

REACTIONS (1)
  - THROAT TIGHTNESS [None]
